FAERS Safety Report 4358806-3 (Version None)
Quarter: 2004Q2

REPORT INFORMATION
  Report Type: 
  Country: None (occurrence: None)
  Receive Date: 20040511
  Receipt Date: 20040426
  Transmission Date: 20050107
  Serious: Yes (Hospitalization, Other)
  Sender: FDA-Public Use
  Company Number: 04-139-0092

PATIENT
  Age: 53 Year
  Sex: Female

DRUGS (1)
  1. DOXORUBICIN, UNKNOWN STRENGTH, BEN VENUE LABS [Suspect]
     Indication: BREAST CANCER METASTATIC
     Dosage: 30MG IV WEEKLY
     Route: 042
     Dates: start: 20040326, end: 20040326

REACTIONS (1)
  - FEBRILE NEUTROPENIA [None]
